FAERS Safety Report 25604123 (Version 1)
Quarter: 2025Q3

REPORT INFORMATION
  Report Type: Spontaneous
  Country: RU (occurrence: RU)
  Receive Date: 20250725
  Receipt Date: 20250725
  Transmission Date: 20251020
  Serious: Yes (Other)
  Sender: EMD SERONO INC
  Company Number: RU-Merck Healthcare KGaA-2025036423

PATIENT
  Age: 86 Year
  Sex: Female

DRUGS (2)
  1. EUTHYROX [Suspect]
     Active Substance: LEVOTHYROXINE SODIUM
     Indication: Hypothyroidism
  2. DIABETON MR [Concomitant]
     Indication: Product used for unknown indication

REACTIONS (4)
  - Diabetes mellitus [Unknown]
  - Cerebrovascular accident [Unknown]
  - Hypertension [Unknown]
  - COVID-19 [Unknown]

NARRATIVE: CASE EVENT DATE: 20200101
